FAERS Safety Report 9690375 (Version 2)
Quarter: 2016Q2

REPORT INFORMATION
  Report Type: Spontaneous
  Country: JP (occurrence: JP)
  Receive Date: 20131115
  Receipt Date: 20160420
  Transmission Date: 20160815
  Serious: Yes (Other)
  Sender: FDA-Public Use
  Company Number: JP-SA-2013SA113993

PATIENT
  Age: 57 Year
  Sex: Male

DRUGS (2)
  1. ADRENALINE [Concomitant]
     Active Substance: EPINEPHRINE
  2. ELPLAT [Suspect]
     Active Substance: OXALIPLATIN
     Indication: RECTAL CANCER
     Dosage: INFUSION
     Route: 041

REACTIONS (2)
  - Hyperfibrinolysis [Recovering/Resolving]
  - Anaphylactic shock [Unknown]
